FAERS Safety Report 11473359 (Version 1)
Quarter: 2015Q3

REPORT INFORMATION
  Report Type: Spontaneous
  Country: US (occurrence: US)
  Receive Date: 20150908
  Receipt Date: 20150908
  Transmission Date: 20151125
  Serious: No
  Sender: FDA-Public Use
  Company Number: US-AMEDRA PHARMACEUTICALS LLC-2014AMD00055

PATIENT
  Age: 34 Year
  Sex: Female
  Weight: 94.79 kg

DRUGS (2)
  1. BENADRYL [Concomitant]
     Active Substance: DIPHENHYDRAMINE HYDROCHLORIDE
     Dosage: 75 MG, AS NEEDED
  2. EPINEPHRINE. [Suspect]
     Active Substance: EPINEPHRINE
     Dosage: 0.3 MG, ONCE
     Route: 051
     Dates: start: 20140725, end: 20140725

REACTIONS (3)
  - Injection site bruising [Recovered/Resolved]
  - Therapeutic response decreased [Recovered/Resolved]
  - Injection site discomfort [Recovering/Resolving]

NARRATIVE: CASE EVENT DATE: 20140725
